FAERS Safety Report 20875684 (Version 1)
Quarter: 2022Q2

REPORT INFORMATION
  Report Type: Spontaneous
  Country: DE (occurrence: DE)
  Receive Date: 20220526
  Receipt Date: 20220526
  Transmission Date: 20220720
  Serious: Yes (Other)
  Sender: FDA-Public Use
  Company Number: DE-BoehringerIngelheim-2022-BI-155210

PATIENT
  Age: 67 Year
  Sex: Female
  Weight: 51 kg

DRUGS (13)
  1. JARDIANCE [Suspect]
     Active Substance: EMPAGLIFLOZIN
     Indication: Cardiac failure
     Dosage: 1-0-0-0
     Route: 048
     Dates: start: 20210818
  2. JARDIANCE [Suspect]
     Active Substance: EMPAGLIFLOZIN
     Indication: Cardiomyopathy
  3. JARDIANCE [Suspect]
     Active Substance: EMPAGLIFLOZIN
     Indication: Type 2 diabetes mellitus
  4. ENTRESTO [Concomitant]
     Active Substance: SACUBITRIL\VALSARTAN
     Indication: Cardiomyopathy
     Dosage: 49 MG/51 MG?1-0-1-0
     Route: 048
  5. ENTRESTO [Concomitant]
     Active Substance: SACUBITRIL\VALSARTAN
     Dosage: 24 MG/26 MG, FILM TABLETS?1-0-1-0
  6. Bisoprolol 5 mg AAA-Pharma Filmtabletten [Concomitant]
     Indication: Cardiomyopathy
     Dosage: 0.5-0-1-0
  7. SPIRONOLACTON 50 Heumann Tabletten [Concomitant]
     Indication: Cardiomyopathy
     Dosage: 1-0-0-0
  8. TORASEMID AL 5 mg Tabletten [Concomitant]
     Indication: Cardiomyopathy
     Dosage: 1-0-0-0
  9. ESTRIFAM 2 mg Fllmtabletten [Concomitant]
     Indication: Hormone therapy
     Dosage: 0-1-0-0
  10. LIXIANA 30 mg Filmtabletten [Concomitant]
     Indication: Atrial fibrillation
     Dosage: 1-0-0-0
     Route: 048
  11. L-THYROXIN 75 Henning Tabletten [Concomitant]
     Indication: Hyperparathyroidism
     Dosage: 1-0-0-0, BEFORE BREAKFAST
  12. ESOMEP 20 mg magensaftresestente Hartkapseln [Concomitant]
     Indication: Product used for unknown indication
     Dosage: 1-0-0-0
  13. FERRO SANOL duodenal Hartkaps. m. msr .Oberz. Pell. [Concomitant]
     Indication: Iron deficiency anaemia
     Dosage: 1-0-1-0

REACTIONS (2)
  - Proteinuria [Not Recovered/Not Resolved]
  - Right ventricular failure [Unknown]

NARRATIVE: CASE EVENT DATE: 20220126
